FAERS Safety Report 6770822-0 (Version None)
Quarter: 2010Q2

REPORT INFORMATION
  Report Type: 
  Country: None (occurrence: None)
  Receive Date: 20100614
  Receipt Date: 20100614
  Transmission Date: 20101027
  Serious: Yes (Hospitalization)
  Sender: FDA-Public Use
  Company Number: None

PATIENT
  Age: 66 Year
  Sex: Male

DRUGS (1)
  1. SULFAMETHOXAZOLE AND TRIMETHOPRIM [Suspect]
     Indication: CELLULITIS
     Dates: start: 20100504, end: 20100506

REACTIONS (7)
  - ANGIOEDEMA [None]
  - CONJUNCTIVITIS [None]
  - EYE DISCHARGE [None]
  - EYE SWELLING [None]
  - PRURITUS [None]
  - RASH [None]
  - URTICARIA [None]
